FAERS Safety Report 9949265 (Version 2)
Quarter: 2014Q1

REPORT INFORMATION
  Report Type: Spontaneous
  Country: US (occurrence: US)
  Receive Date: 20140304
  Receipt Date: 20140317
  Transmission Date: 20141002
  Serious: No
  Sender: FDA-Public Use
  Company Number: US-PFIZER INC-2014056896

PATIENT
  Age: 86 Year
  Sex: Female
  Weight: 63.49 kg

DRUGS (1)
  1. VFEND [Suspect]
     Indication: EYE INFECTION FUNGAL
     Dosage: UNK, 2X/DAY
     Dates: start: 201112

REACTIONS (1)
  - Visual acuity reduced [Not Recovered/Not Resolved]
